FAERS Safety Report 5358909-0 (Version None)
Quarter: 2007Q2

REPORT INFORMATION
  Report Type: 
  Country: None (occurrence: None)
  Receive Date: 20070615
  Receipt Date: 20070604
  Transmission Date: 20071010
  Serious: Yes (Other)
  Sender: FDA-Public Use
  Company Number: B0471459A

PATIENT
  Age: 64 Year
  Sex: Female

DRUGS (1)
  1. MALARONE [Suspect]
     Indication: MALARIA PROPHYLAXIS
     Route: 048
     Dates: start: 20070401

REACTIONS (4)
  - PITYRIASIS [None]
  - PSORIASIS [None]
  - RASH [None]
  - RASH GENERALISED [None]
